FAERS Safety Report 21292470 (Version 2)
Quarter: 2022Q4

REPORT INFORMATION
  Report Type: Spontaneous
  Country: US (occurrence: US)
  Receive Date: 20220905
  Receipt Date: 20221001
  Transmission Date: 20230113
  Serious: Yes (Hospitalization, Other)
  Sender: FDA-Public Use
  Company Number: US-drreddys-SPO/USA/22/0154032

PATIENT
  Age: 58 Year
  Sex: Female

DRUGS (4)
  1. TACROLIMUS [Interacting]
     Active Substance: TACROLIMUS
     Indication: Immunosuppressant drug therapy
  2. RITONAVIR [Interacting]
     Active Substance: RITONAVIR
     Indication: COVID-19 treatment
  3. CASIRIVIMAB\IMDEVIMAB [Concomitant]
     Active Substance: CASIRIVIMAB\IMDEVIMAB
     Indication: COVID-19 treatment
  4. PREDNISONE [Concomitant]
     Active Substance: PREDNISONE
     Indication: Immunosuppressant drug therapy

REACTIONS (6)
  - Drug level above therapeutic [Recovered/Resolved]
  - Toxicity to various agents [Recovered/Resolved]
  - Drug interaction [Recovered/Resolved]
  - Acute kidney injury [Recovered/Resolved]
  - Enteritis [Recovered/Resolved]
  - Incorrect dose administered [Recovered/Resolved]
